FAERS Safety Report 23575785 (Version 1)
Quarter: 2024Q1

REPORT INFORMATION
  Report Type: Spontaneous
  Country: TR (occurrence: TR)
  Receive Date: 20240228
  Receipt Date: 20240228
  Transmission Date: 20240410
  Serious: Yes (Life-Threatening)
  Sender: FDA-Public Use
  Company Number: TR-002147023-NVSC2024TR041185

PATIENT
  Age: 49 Year
  Sex: Male
  Weight: 77 kg

DRUGS (2)
  1. SECUKINUMAB [Suspect]
     Active Substance: SECUKINUMAB
     Indication: Arthralgia
     Dosage: UNK, QMO, FOR 2 YEARS
     Route: 058
     Dates: start: 20220215, end: 20231231
  2. SECUKINUMAB [Suspect]
     Active Substance: SECUKINUMAB
     Indication: Ankylosing spondylitis

REACTIONS (11)
  - Oral herpes [Not Recovered/Not Resolved]
  - Fungal infection [Not Recovered/Not Resolved]
  - Dyspnoea [Not Recovered/Not Resolved]
  - Adenoidal hypertrophy [Not Recovered/Not Resolved]
  - Headache [Not Recovered/Not Resolved]
  - Sluggishness [Not Recovered/Not Resolved]
  - Haematochezia [Not Recovered/Not Resolved]
  - Eye pruritus [Not Recovered/Not Resolved]
  - Ear pain [Not Recovered/Not Resolved]
  - Pruritus [Not Recovered/Not Resolved]
  - Fatigue [Not Recovered/Not Resolved]

NARRATIVE: CASE EVENT DATE: 20220515
